FAERS Safety Report 4363251-0 (Version None)
Quarter: 2004Q2

REPORT INFORMATION
  Report Type: 
  Country: None (occurrence: None)
  Receive Date: 20040519
  Receipt Date: 20040510
  Transmission Date: 20050107
  Serious: Yes (Other)
  Sender: FDA-Public Use
  Company Number: 2004-05-0190

PATIENT
  Age: 53 Year
  Sex: Female
  Weight: 60 kg

DRUGS (4)
  1. INTRON A [Suspect]
     Indication: CARCINOMA
     Dosage: 3 MIU TIW* SUBCUTANEOUS
     Route: 058
     Dates: start: 20021202, end: 20030401
  2. INTRON A [Suspect]
     Indication: CARCINOMA
     Dosage: 3 MIU TIW* SUBCUTANEOUS
     Route: 058
     Dates: start: 20021202, end: 20040319
  3. INTRON A [Suspect]
     Indication: CARCINOMA
     Dosage: 3 MIU TIW* SUBCUTANEOUS
     Route: 058
     Dates: start: 20030617, end: 20040319
  4. PEG-INTRON [Suspect]
     Indication: CARCINOMA
     Dosage: 80 MCG WEEKLY SUBCUTANEOUS
     Route: 058
     Dates: start: 20030401, end: 20030617

REACTIONS (2)
  - DEAFNESS UNILATERAL [None]
  - ILEUS [None]
